FAERS Safety Report 10760409 (Version 2)
Quarter: 2015Q3

REPORT INFORMATION
  Report Type: Spontaneous
  Country: AT (occurrence: AT)
  Receive Date: 20150204
  Receipt Date: 20150714
  Transmission Date: 20151125
  Serious: Yes (Hospitalization)
  Sender: FDA-Public Use
  Company Number: AT-ASTRAZENECA-2015SE10076

PATIENT
  Age: 19 Year
  Sex: Female

DRUGS (34)
  1. CIPRALEX [Concomitant]
     Active Substance: ESCITALOPRAM OXALATE
     Dates: start: 20141109, end: 20141202
  2. TRITTICO [Concomitant]
     Active Substance: TRAZODONE HYDROCHLORIDE
     Dates: start: 20141121, end: 20141123
  3. TRITTICO [Concomitant]
     Active Substance: TRAZODONE HYDROCHLORIDE
     Dates: start: 20141201
  4. PRAXITEN [Concomitant]
     Active Substance: OXAZEPAM
     Route: 048
     Dates: start: 20141107, end: 20141111
  5. ZOLDEM [Concomitant]
     Active Substance: ZOLPIDEM TARTRATE
     Dates: start: 20141202, end: 20141203
  6. SEROQUEL [Suspect]
     Active Substance: QUETIAPINE FUMARATE
     Route: 048
     Dates: start: 20141110
  7. PRAXITEN [Concomitant]
     Active Substance: OXAZEPAM
     Route: 048
     Dates: start: 20141115
  8. GYNECOLOGICALS [Concomitant]
     Dates: start: 20141121, end: 20141122
  9. ABILIFY [Concomitant]
     Active Substance: ARIPIPRAZOLE
     Dates: start: 20141117, end: 20141118
  10. TEMESTA [Concomitant]
     Active Substance: LORAZEPAM
     Dosage: 1-2 MG, DAILY
     Dates: start: 20141103, end: 20141105
  11. PRAXITEN [Concomitant]
     Active Substance: OXAZEPAM
     Route: 048
     Dates: start: 20141106, end: 20141106
  12. HOVA [Concomitant]
     Active Substance: HOPS\VALERIAN
     Dates: start: 20141106, end: 20141106
  13. AERIUS [Concomitant]
     Active Substance: DESLORATADINE
     Dates: start: 20141107, end: 20141113
  14. ATARAX [Concomitant]
     Active Substance: HYDROXYZINE\HYDROXYZINE HYDROCHLORIDE
     Indication: PRURITUS
     Dosage: 25-50 MG, DAILY
     Dates: start: 20141106, end: 20141110
  15. TRITTICO [Concomitant]
     Active Substance: TRAZODONE HYDROCHLORIDE
     Dates: start: 20141124, end: 20141130
  16. ATARAX [Concomitant]
     Active Substance: HYDROXYZINE\HYDROXYZINE HYDROCHLORIDE
     Indication: PRURITUS
     Dates: start: 20141121, end: 20141121
  17. ABILIFY [Concomitant]
     Active Substance: ARIPIPRAZOLE
     Dates: start: 20141114, end: 20141116
  18. AKINETON [Concomitant]
     Active Substance: BIPERIDEN HYDROCHLORIDE
     Dates: start: 20141116, end: 20141116
  19. ZOLDEM [Concomitant]
     Active Substance: ZOLPIDEM TARTRATE
     Dates: start: 20141107, end: 20141201
  20. MEXALEN [Concomitant]
     Active Substance: LUBIPROSTONE
     Dates: start: 20141112, end: 20141112
  21. SEROQUEL [Suspect]
     Active Substance: QUETIAPINE FUMARATE
     Route: 048
     Dates: start: 20141104, end: 20141105
  22. ATARAX [Concomitant]
     Active Substance: HYDROXYZINE\HYDROXYZINE HYDROCHLORIDE
     Indication: PRURITUS
     Dates: start: 20141114, end: 20141116
  23. ATARAX [Concomitant]
     Active Substance: HYDROXYZINE\HYDROXYZINE HYDROCHLORIDE
     Indication: PRURITUS
     Dates: start: 20141118, end: 20141118
  24. ADVANTAN [Concomitant]
     Active Substance: CORTICOSTEROID NOS
     Dates: start: 20141106
  25. CIPRALEX [Concomitant]
     Active Substance: ESCITALOPRAM OXALATE
     Dates: start: 20141108, end: 20141108
  26. CIPRALEX [Concomitant]
     Active Substance: ESCITALOPRAM OXALATE
     Dates: start: 20141203
  27. MIRTABENE [Concomitant]
     Active Substance: MIRTAZAPINE
     Dates: start: 20141201
  28. OMNIBIOTIC [Concomitant]
     Dates: end: 20141112
  29. ABILIFY [Concomitant]
     Active Substance: ARIPIPRAZOLE
     Dates: start: 20141112, end: 20141113
  30. ABILIFY [Concomitant]
     Active Substance: ARIPIPRAZOLE
     Dates: start: 20141119
  31. MEXALEN [Concomitant]
     Active Substance: LUBIPROSTONE
     Dates: start: 20141123, end: 20141124
  32. MEXALEN [Concomitant]
     Active Substance: LUBIPROSTONE
     Dates: start: 20141126, end: 20141126
  33. SERTRALINE [Suspect]
     Active Substance: SERTRALINE HYDROCHLORIDE
     Route: 048
     Dates: start: 20141103, end: 20141103
  34. SERTRALINE [Suspect]
     Active Substance: SERTRALINE HYDROCHLORIDE
     Route: 048
     Dates: start: 20141104, end: 20141106

REACTIONS (1)
  - Dermatitis allergic [Recovered/Resolved]

NARRATIVE: CASE EVENT DATE: 20141106
